FAERS Safety Report 5408513-0 (Version None)
Quarter: 2007Q3

REPORT INFORMATION
  Report Type: 
  Country: None (occurrence: None)
  Receive Date: 20070806
  Receipt Date: 20070705
  Transmission Date: 20080115
  Serious: Yes (Death, Life-Threatening, Hospitalization, Other)
  Sender: FDA-Public Use
  Company Number: 2007US001750

PATIENT
  Age: 70 Year
  Sex: Male

DRUGS (3)
  1. PROGRAF [Suspect]
     Indication: HEART TRANSPLANT
     Dosage: 5 MG, UID/QD
  2. PREDNISONE TAB [Concomitant]
  3. MYCOPHENOLATE      (MYCOPHENOLATE MOFETIL) [Concomitant]

REACTIONS (19)
  - BACTERAEMIA [None]
  - BODY TEMPERATURE DECREASED [None]
  - DEHYDRATION [None]
  - DIARRHOEA [None]
  - DYSPNOEA [None]
  - DYSPNOEA EXERTIONAL [None]
  - HEART RATE INCREASED [None]
  - IMMUNOSUPPRESSANT DRUG LEVEL INCREASED [None]
  - NAUSEA [None]
  - NEUTROPENIA [None]
  - NOCARDIOSIS [None]
  - OXYGEN SATURATION DECREASED [None]
  - PLEURITIC PAIN [None]
  - PNEUMONIA [None]
  - PRODUCTIVE COUGH [None]
  - RENAL FAILURE ACUTE [None]
  - RESPIRATORY RATE INCREASED [None]
  - TRANSPLANT REJECTION [None]
  - VOMITING [None]
